FAERS Safety Report 10015685 (Version 2)
Quarter: 2014Q1

REPORT INFORMATION
  Report Type: Spontaneous
  Country: US (occurrence: US)
  Receive Date: 20140317
  Receipt Date: 20140321
  Transmission Date: 20141002
  Serious: No
  Sender: FDA-Public Use
  Company Number: US-009507513-1403USA006615

PATIENT
  Age: 42 Year
  Sex: Female

DRUGS (1)
  1. JANUVIA [Suspect]
     Indication: TYPE 2 DIABETES MELLITUS
     Dosage: 2 PILLS 100 MG, BID
     Route: 048
     Dates: start: 201202, end: 201302

REACTIONS (6)
  - Drug ineffective [Recovered/Resolved with Sequelae]
  - Overdose [Unknown]
  - Inappropriate schedule of drug administration [Unknown]
  - Nausea [Recovered/Resolved with Sequelae]
  - Headache [Recovered/Resolved with Sequelae]
  - Migraine [Recovered/Resolved with Sequelae]
